FAERS Safety Report 9072235 (Version 1)
Quarter: 2013Q1

REPORT INFORMATION
  Report Type: Report from Study
  Country: US (occurrence: US)
  Receive Date: 20130129
  Receipt Date: 20130129
  Transmission Date: 20140127
  Serious: No
  Sender: FDA-Public Use
  Company Number: US-ABBOTT-12P-163-0920688-00

PATIENT
  Age: 48 Year
  Sex: Female
  Weight: 77.18 kg

DRUGS (6)
  1. HUMIRA 40 MG/0.8 ML PEN [Suspect]
     Indication: CROHN^S DISEASE
     Dates: start: 20120205
  2. PENTASA [Concomitant]
     Indication: PRODUCT USED FOR UNKNOWN INDICATION
  3. MERCAPTOPURINE [Concomitant]
     Indication: PRODUCT USED FOR UNKNOWN INDICATION
  4. TRAZODONE [Concomitant]
     Indication: INSOMNIA
  5. WELCHOL [Concomitant]
     Indication: PRODUCT USED FOR UNKNOWN INDICATION
  6. ENTOCORT [Concomitant]
     Indication: PRODUCT USED FOR UNKNOWN INDICATION

REACTIONS (4)
  - Wrong technique in drug usage process [Recovering/Resolving]
  - Arthralgia [Not Recovered/Not Resolved]
  - Device malfunction [Unknown]
  - Drug dose omission [Unknown]
